FAERS Safety Report 13001412 (Version 2)
Quarter: 2017Q1

REPORT INFORMATION
  Report Type: Report from Study
  Country: JP (occurrence: JP)
  Receive Date: 20161206
  Receipt Date: 20170324
  Transmission Date: 20170428
  Serious: Yes (Other)
  Sender: FDA-Public Use
  Company Number: JP-ASTELLAS-2016JP020574

PATIENT
  Age: 30 Year
  Sex: Female

DRUGS (80)
  1. TACROLIMUS. [Suspect]
     Active Substance: TACROLIMUS
     Route: 048
     Dates: start: 20090326, end: 20090705
  2. TACROLIMUS. [Suspect]
     Active Substance: TACROLIMUS
     Route: 048
     Dates: start: 20120316
  3. WARFARIN [Suspect]
     Active Substance: WARFARIN
     Route: 048
     Dates: start: 20110228, end: 20110714
  4. WARFARIN [Suspect]
     Active Substance: WARFARIN
     Route: 048
     Dates: start: 20150202, end: 20150426
  5. WARFARIN [Suspect]
     Active Substance: WARFARIN
     Route: 048
     Dates: start: 20150511, end: 20150809
  6. DIOVAN [Concomitant]
     Active Substance: VALSARTAN
     Indication: LUPUS NEPHRITIS
     Route: 048
     Dates: start: 20090406, end: 20090621
  7. SOLYUGEN G [Concomitant]
     Indication: NASOPHARYNGITIS
     Route: 065
     Dates: start: 20160124, end: 20160124
  8. CARBOCISTEINE [Concomitant]
     Active Substance: CARBOCYSTEINE
     Indication: NASOPHARYNGITIS
     Route: 048
     Dates: start: 20160411, end: 20160612
  9. TACROLIMUS. [Suspect]
     Active Substance: TACROLIMUS
     Route: 048
     Dates: start: 20100823, end: 20110714
  10. TACROLIMUS. [Suspect]
     Active Substance: TACROLIMUS
     Dosage: 0.5 MG, ONCE DAILY
     Route: 048
     Dates: start: 20110819, end: 20120315
  11. WARFARIN [Suspect]
     Active Substance: WARFARIN
     Indication: ANTIPHOSPHOLIPID SYNDROME
     Route: 048
     Dates: start: 20080410, end: 20080411
  12. WARFARIN [Suspect]
     Active Substance: WARFARIN
     Route: 048
     Dates: start: 20080804, end: 20080821
  13. WARFARIN [Suspect]
     Active Substance: WARFARIN
     Route: 048
     Dates: start: 20101101, end: 20110130
  14. WARFARIN [Suspect]
     Active Substance: WARFARIN
     Route: 048
     Dates: start: 20120217, end: 20120315
  15. MEDROL [Concomitant]
     Active Substance: METHYLPREDNISOLONE
     Route: 048
     Dates: start: 20160222
  16. TANATRIL [Concomitant]
     Active Substance: IMIDAPRIL
     Indication: LUPUS NEPHRITIS
     Route: 048
     Dates: start: 20110228
  17. ATORVASTATIN [Concomitant]
     Active Substance: ATORVASTATIN
     Indication: HYPERLIPIDAEMIA
     Route: 048
     Dates: start: 20150706
  18. VALSARTAN. [Concomitant]
     Active Substance: VALSARTAN
     Indication: LUPUS NEPHRITIS
     Route: 048
     Dates: start: 20150706
  19. HEPARINOID [Concomitant]
     Active Substance: CHONDROITIN SULFATE (BOVINE)
     Indication: DRY SKIN
     Dosage: UNK UNK, UNKNOWN FREQ.
     Route: 065
     Dates: start: 20150810
  20. LOXOPROFEN SODIUM [Concomitant]
     Active Substance: LOXOPROFEN SODIUM
     Indication: BACK PAIN
     Dosage: UNK UNK, UNKNOWN FREQ.
     Route: 065
     Dates: start: 20150928, end: 20160221
  21. WARFARIN [Suspect]
     Active Substance: WARFARIN
     Route: 048
     Dates: start: 20090308, end: 20090311
  22. WARFARIN [Suspect]
     Active Substance: WARFARIN
     Route: 048
     Dates: start: 20090312, end: 20090318
  23. WARFARIN [Suspect]
     Active Substance: WARFARIN
     Route: 048
     Dates: start: 20090525, end: 20090830
  24. WARFARIN [Suspect]
     Active Substance: WARFARIN
     Route: 048
     Dates: start: 20120316, end: 20120826
  25. EPADEL-S [Concomitant]
     Active Substance: ICOSAPENT ETHYL
     Route: 048
     Dates: start: 20120217, end: 20150809
  26. KAYTWO N [Concomitant]
     Active Substance: MENATETRENONE
     Indication: UPPER RESPIRATORY TRACT INFLAMMATION
     Route: 065
     Dates: start: 20121119, end: 20121119
  27. BAYASPIRIN [Concomitant]
     Active Substance: ASPIRIN
     Indication: ANTIPHOSPHOLIPID SYNDROME
     Route: 048
     Dates: start: 20120921
  28. TACROLIMUS. [Suspect]
     Active Substance: TACROLIMUS
     Route: 048
     Dates: start: 20110715, end: 20110818
  29. WARFARIN [Suspect]
     Active Substance: WARFARIN
     Route: 048
     Dates: start: 20080515, end: 20080611
  30. WARFARIN [Suspect]
     Active Substance: WARFARIN
     Route: 048
     Dates: start: 20140804, end: 20150201
  31. WARFARIN [Suspect]
     Active Substance: WARFARIN
     Route: 048
     Dates: start: 20151116, end: 20160413
  32. EPADEL-S [Concomitant]
     Active Substance: ICOSAPENT ETHYL
     Indication: HYPERLIPIDAEMIA
     Route: 048
     Dates: end: 20080226
  33. KAYTWO N [Concomitant]
     Active Substance: MENATETRENONE
     Indication: PROPHYLAXIS
     Route: 065
     Dates: start: 20090306, end: 20090307
  34. SEISHOKU [Concomitant]
     Active Substance: SODIUM CHLORIDE
     Indication: FACTOR II DEFICIENCY
     Route: 065
     Dates: start: 20160411, end: 20160411
  35. WARFARIN [Suspect]
     Active Substance: WARFARIN
     Route: 048
     Dates: start: 20080412, end: 20080514
  36. WARFARIN [Suspect]
     Active Substance: WARFARIN
     Route: 048
     Dates: start: 20080612, end: 20080625
  37. WARFARIN [Suspect]
     Active Substance: WARFARIN
     Route: 048
     Dates: start: 20080626, end: 20080803
  38. WARFARIN [Suspect]
     Active Substance: WARFARIN
     Route: 048
     Dates: start: 20080822, end: 20080917
  39. WARFARIN [Suspect]
     Active Substance: WARFARIN
     Route: 048
     Dates: start: 20090831, end: 20101031
  40. WARFARIN [Suspect]
     Active Substance: WARFARIN
     Route: 048
     Dates: start: 20140106, end: 20140803
  41. WARFARIN [Suspect]
     Active Substance: WARFARIN
     Route: 048
     Dates: start: 20160414, end: 20160424
  42. MEDROL [Concomitant]
     Active Substance: METHYLPREDNISOLONE
     Route: 048
     Dates: start: 20130902, end: 20150301
  43. LIPITOR [Concomitant]
     Active Substance: ATORVASTATIN CALCIUM
     Indication: HYPERLIPIDAEMIA
     Route: 048
     Dates: end: 20070726
  44. LIPITOR [Concomitant]
     Active Substance: ATORVASTATIN CALCIUM
     Route: 048
     Dates: start: 20071130
  45. KAYTWO N [Concomitant]
     Active Substance: MENATETRENONE
     Route: 065
     Dates: start: 20160411, end: 20160411
  46. DIOVAN [Concomitant]
     Active Substance: VALSARTAN
     Route: 048
     Dates: start: 20090622, end: 20150705
  47. ZETIA [Concomitant]
     Active Substance: EZETIMIBE
     Indication: PRODUCT USED FOR UNKNOWN INDICATION
     Route: 048
     Dates: start: 20120723
  48. BONOTEO [Concomitant]
     Active Substance: MINODRONIC ACID
     Route: 048
     Dates: start: 20160222
  49. WARFARIN [Suspect]
     Active Substance: WARFARIN
     Route: 048
     Dates: start: 20080918, end: 20081113
  50. WARFARIN [Suspect]
     Active Substance: WARFARIN
     Route: 048
     Dates: start: 20120827, end: 20121120
  51. WARFARIN [Suspect]
     Active Substance: WARFARIN
     Route: 048
     Dates: start: 20130513, end: 20140105
  52. WARFARIN [Suspect]
     Active Substance: WARFARIN
     Route: 048
     Dates: start: 20150810, end: 20151115
  53. MEDROL [Concomitant]
     Active Substance: METHYLPREDNISOLONE
     Route: 048
     Dates: start: 20150302, end: 20160221
  54. BREDININ [Concomitant]
     Active Substance: MIZORIBINE
     Indication: LUPUS NEPHRITIS
     Route: 048
     Dates: start: 20080229, end: 20080414
  55. LIPITOR [Concomitant]
     Active Substance: ATORVASTATIN CALCIUM
     Route: 048
     Dates: end: 20090306
  56. LIPITOR [Concomitant]
     Active Substance: ATORVASTATIN CALCIUM
     Route: 048
     Dates: start: 20091228, end: 20150705
  57. OLOPATADINE HYDROCHLORIDE. [Concomitant]
     Active Substance: OLOPATADINE HYDROCHLORIDE
     Indication: NASOPHARYNGITIS
     Route: 048
     Dates: start: 20160411, end: 20160612
  58. BONOTEO [Concomitant]
     Active Substance: MINODRONIC ACID
     Indication: OSTEOPOROSIS
     Route: 048
     Dates: start: 20130218, end: 20150510
  59. TACROLIMUS. [Suspect]
     Active Substance: TACROLIMUS
     Indication: LUPUS NEPHRITIS
     Route: 048
     Dates: start: 20070723, end: 20090325
  60. TACROLIMUS. [Suspect]
     Active Substance: TACROLIMUS
     Route: 048
     Dates: start: 20091102, end: 20100124
  61. TACROLIMUS. [Suspect]
     Active Substance: TACROLIMUS
     Route: 048
     Dates: start: 20100125, end: 20100822
  62. WARFARIN [Suspect]
     Active Substance: WARFARIN
     Route: 048
     Dates: start: 20081114, end: 20090307
  63. WARFARIN [Suspect]
     Active Substance: WARFARIN
     Route: 048
     Dates: start: 20090319, end: 20090322
  64. WARFARIN [Suspect]
     Active Substance: WARFARIN
     Route: 048
     Dates: start: 20110131, end: 20110227
  65. WARFARIN [Suspect]
     Active Substance: WARFARIN
     Route: 048
     Dates: start: 20121121, end: 20130120
  66. WARFARIN [Suspect]
     Active Substance: WARFARIN
     Route: 048
     Dates: start: 20150427, end: 20150510
  67. MEDROL [Concomitant]
     Active Substance: METHYLPREDNISOLONE
     Indication: LUPUS NEPHRITIS
     Dosage: 16-40MG/DAY
     Route: 048
     Dates: start: 20080229, end: 20130901
  68. BREDININ [Concomitant]
     Active Substance: MIZORIBINE
     Route: 048
     Dates: start: 20091102
  69. LIPITOR [Concomitant]
     Active Substance: ATORVASTATIN CALCIUM
     Route: 048
     Dates: start: 20090608, end: 20091004
  70. LIPITOR [Concomitant]
     Active Substance: ATORVASTATIN CALCIUM
     Route: 048
     Dates: start: 20091005, end: 20091227
  71. ALFAROL [Concomitant]
     Active Substance: ALFACALCIDOL
     Indication: PROPHYLAXIS
     Dosage: 0.25 ?G, ONCE DAILY
     Route: 048
     Dates: end: 20150705
  72. ETHYL ICOSAPENTATE [Concomitant]
     Active Substance: ICOSAPENT ETHYL
     Indication: HYPERLIPIDAEMIA
     Route: 048
     Dates: start: 20150810
  73. TACROLIMUS. [Suspect]
     Active Substance: TACROLIMUS
     Route: 048
     Dates: start: 20090706, end: 20091101
  74. WARFARIN [Suspect]
     Active Substance: WARFARIN
     Route: 048
     Dates: start: 20090323, end: 20090524
  75. WARFARIN [Suspect]
     Active Substance: WARFARIN
     Route: 048
     Dates: start: 20110715, end: 20120216
  76. WARFARIN [Suspect]
     Active Substance: WARFARIN
     Route: 048
     Dates: start: 20130121, end: 20130512
  77. WARFARIN [Suspect]
     Active Substance: WARFARIN
     Route: 048
     Dates: start: 20160425, end: 20160814
  78. OMEPRAL [Concomitant]
     Active Substance: OMEPRAZOLE
     Indication: PROPHYLAXIS
     Route: 048
  79. PARIET [Concomitant]
     Active Substance: RABEPRAZOLE SODIUM
     Indication: PROPHYLAXIS
     Route: 048
     Dates: start: 20070724, end: 20150809
  80. ALFACALCIDOL [Concomitant]
     Active Substance: ALFACALCIDOL
     Indication: PROPHYLAXIS
     Dosage: 0.25 ?G, ONCE DAILY
     Route: 048
     Dates: start: 20150706

REACTIONS (3)
  - Factor II deficiency [Recovered/Resolved]
  - Dysmenorrhoea [Unknown]
  - Dry skin [Recovered/Resolved]

NARRATIVE: CASE EVENT DATE: 201508
